FAERS Safety Report 4802829-4 (Version None)
Quarter: 2005Q4

REPORT INFORMATION
  Report Type: 
  Country: None (occurrence: None)
  Receive Date: 20051013
  Receipt Date: 20050928
  Transmission Date: 20060501
  Serious: Yes (Death, Life-Threatening, Hospitalization, Other)
  Sender: FDA-Public Use
  Company Number: AU-2005-020212

PATIENT
  Age: 64 Year
  Sex: Male
  Weight: 78.5 kg

DRUGS (3)
  1. FLUDARABINE PHOSPHATE [Suspect]
     Indication: CHRONIC LYMPHOCYTIC LEUKAEMIA
     Dosage: 50 MG, EVERY 28 DAYS, INTRAVENOUS
     Route: 042
     Dates: start: 20030912, end: 20050205
  2. CYCLOPHOSPHAMIDE [Suspect]
     Indication: CHRONIC LYMPHOCYTIC LEUKAEMIA
     Dosage: 480 MG, EVERY 28 DAYS, INTRAVENOUS
     Route: 042
     Dates: start: 20030912
  3. TEMAZEPAM [Concomitant]

REACTIONS (13)
  - ALANINE AMINOTRANSFERASE INCREASED [None]
  - BACTERIAL INFECTION [None]
  - BLOOD ALBUMIN DECREASED [None]
  - BLOOD ALKALINE PHOSPHATASE INCREASED [None]
  - BLOOD BILIRUBIN INCREASED [None]
  - BONE MARROW FAILURE [None]
  - LETHARGY [None]
  - NECROSIS [None]
  - NEUTROPENIA [None]
  - PANCYTOPENIA [None]
  - PERIPHERAL ISCHAEMIA [None]
  - PYREXIA [None]
  - STAPHYLOCOCCAL SEPSIS [None]
